FAERS Safety Report 7217430-5 (Version None)
Quarter: 2011Q1

REPORT INFORMATION
  Report Type: 
  Country: None (occurrence: None)
  Receive Date: 20110110
  Receipt Date: 20101228
  Transmission Date: 20110831
  Serious: Yes (Hospitalization, Other)
  Sender: FDA-Public Use
  Company Number: JP-AMGEN-KDC434533

PATIENT

DRUGS (3)
  1. PANITUMUMAB [Suspect]
     Indication: COLORECTAL CANCER
     Dosage: 6 MG/KG, Q2WK
     Route: 041
     Dates: start: 20100720, end: 20100802
  2. ANTIHISTAMINES [Concomitant]
     Indication: PROPHYLAXIS
     Dosage: UNK UNK, UNK
     Route: 065
  3. POLARAMINE [Concomitant]
     Indication: ALLERGY PROPHYLAXIS
     Route: 041
     Dates: start: 20100720

REACTIONS (11)
  - RENAL FAILURE ACUTE [None]
  - HYDRONEPHROSIS [None]
  - URETERIC OBSTRUCTION [None]
  - HAEMOGLOBIN DECREASED [None]
  - LEUKOCYTOCLASTIC VASCULITIS [None]
  - METASTASES TO PERITONEUM [None]
  - HENOCH-SCHONLEIN PURPURA [None]
  - PROTEINURIA [None]
  - DERMATITIS ACNEIFORM [None]
  - HYPOALBUMINAEMIA [None]
  - PLATELET COUNT DECREASED [None]
